FAERS Safety Report 10031665 (Version 1)
Quarter: 2014Q1

REPORT INFORMATION
  Report Type: Spontaneous
  Country: US (occurrence: US)
  Receive Date: 20140324
  Receipt Date: 20140324
  Transmission Date: 20141002
  Serious: No
  Sender: FDA-Public Use
  Company Number: US-PFIZER INC-2014083557

PATIENT
  Age: 54 Year
  Sex: Female
  Weight: 68.9 kg

DRUGS (9)
  1. EFFEXOR XR [Suspect]
     Indication: DEPRESSION
     Dosage: 300 MG, DAILY
  2. EFFEXOR XR [Suspect]
     Indication: ANXIETY
  3. JANUVIA [Concomitant]
     Dosage: UNK
  4. PREDNISONE [Concomitant]
     Dosage: UNK
  5. TRICOR [Concomitant]
     Dosage: UNK
  6. MYCOPHENOLATE MOFETIL [Concomitant]
     Dosage: UNK
  7. PROGRAF [Concomitant]
     Dosage: UNK
  8. URSODIOL [Concomitant]
     Dosage: UNK
  9. ATENOLOL [Concomitant]
     Dosage: UNK

REACTIONS (1)
  - Chest pain [Unknown]
